FAERS Safety Report 22057021 (Version 1)
Quarter: 2023Q1

REPORT INFORMATION
  Report Type: Report from Study
  Country: US (occurrence: None)
  Receive Date: 20230303
  Receipt Date: 20230303
  Transmission Date: 20230417
  Serious: Yes (Life-Threatening)
  Sender: FDA-Public Use
  Company Number: US-ROCHE-3075050

PATIENT

DRUGS (4)
  1. ATEZOLIZUMAB [Suspect]
     Active Substance: ATEZOLIZUMAB
     Indication: Invasive breast carcinoma
     Route: 042
  2. PERTUZUMAB [Suspect]
     Active Substance: PERTUZUMAB
     Indication: Invasive breast carcinoma
     Dosage: LOADING DOSE OF INTRAVENOUS PERTUZUMAB 840 MG EVERY 3 WEEKS FOLLOWED BY MAINTENANCE DOSE OF 420 MG E
     Route: 042
  3. TRASTUZUMAB [Suspect]
     Active Substance: TRASTUZUMAB
     Indication: Invasive breast carcinoma
     Dosage: INTRAVENOUS TRASUTUZMAB 8 MG/KG FOLLOWED BY MAINTENANCE DOSE OF 6 MG/KG EVERY 3 WEEKS.
     Route: 041
  4. PACLITAXEL [Suspect]
     Active Substance: PACLITAXEL
     Indication: Invasive breast carcinoma
     Route: 042

REACTIONS (3)
  - Colitis [Unknown]
  - Vasculitis [Unknown]
  - Colitis [Unknown]

NARRATIVE: CASE EVENT DATE: 20200930
